FAERS Safety Report 14541511 (Version 1)
Quarter: 2018Q1

REPORT INFORMATION
  Report Type: Spontaneous
  Country: AT (occurrence: AT)
  Receive Date: 20180216
  Receipt Date: 20180216
  Transmission Date: 20180509
  Serious: Yes (Hospitalization)
  Sender: FDA-Public Use
  Company Number: AT-OTSUKA-DJ20091622

PATIENT

DRUGS (4)
  1. LEPONEX [Concomitant]
     Active Substance: CLOZAPINE
     Indication: SCHIZOPHRENIA
     Dosage: 100 MG, QD
     Route: 048
     Dates: start: 2004
  2. SERTRALINE HCL [Concomitant]
     Active Substance: SERTRALINE HYDROCHLORIDE
     Indication: SCHIZOPHRENIA
     Dosage: 50 MG, QD
     Route: 048
     Dates: start: 200705
  3. ABILIFY [Suspect]
     Active Substance: ARIPIPRAZOLE
     Indication: SCHIZOPHRENIA
     Route: 048
     Dates: start: 20070202, end: 200904
  4. THIAMAZOLE [Concomitant]
     Active Substance: METHIMAZOLE
     Indication: HYPERTHYROIDISM
     Dosage: 20 MG, QD
     Route: 048
     Dates: start: 200903

REACTIONS (2)
  - Blood creatine phosphokinase increased [Recovered/Resolved]
  - General physical health deterioration [Recovered/Resolved]

NARRATIVE: CASE EVENT DATE: 20090408
